FAERS Safety Report 5305187-4 (Version None)
Quarter: 2007Q2

REPORT INFORMATION
  Report Type: 
  Country: None (occurrence: None)
  Receive Date: 20070416
  Receipt Date: 20070410
  Transmission Date: 20071010
  Serious: Yes (Other)
  Sender: FDA-Public Use
  Company Number: 2007SP005383

PATIENT
  Age: 56 Year
  Sex: Female
  Weight: 72.5755 kg

DRUGS (2)
  1. ASMANEX TWISTHALER [Suspect]
     Indication: ASTHMA EXERCISE INDUCED
     Dosage: 220 MCG; QD; PO
     Route: 048
     Dates: start: 20070216
  2. ADVAIR DISKUS 100/50 [Concomitant]

REACTIONS (2)
  - ASTHMA [None]
  - DIABETES MELLITUS [None]
